FAERS Safety Report 20225863 (Version 1)
Quarter: 2021Q4

REPORT INFORMATION
  Report Type: Spontaneous
  Country: TN (occurrence: TN)
  Receive Date: 20211224
  Receipt Date: 20211224
  Transmission Date: 20220303
  Serious: Yes (Other)
  Sender: FDA-Public Use
  Company Number: TN-SUN PHARMACEUTICAL INDUSTRIES LTD-2021R1-321555

PATIENT
  Age: 27 Year
  Sex: Female

DRUGS (1)
  1. NICARDIPINE [Suspect]
     Active Substance: NICARDIPINE
     Indication: Gestational hypertension
     Dosage: UNK
     Route: 065

REACTIONS (6)
  - Hypokalaemia [Unknown]
  - Exposure during pregnancy [Unknown]
  - Weight increased [Unknown]
  - Erythrosis [Unknown]
  - Premature delivery [Unknown]
  - Pre-eclampsia [Unknown]
